FAERS Safety Report 6543590-5 (Version None)
Quarter: 2010Q1

REPORT INFORMATION
  Report Type: 
  Country: None (occurrence: None)
  Receive Date: 20100120
  Receipt Date: 20100105
  Transmission Date: 20100710
  Serious: Yes (Death)
  Sender: FDA-Public Use
  Company Number: US-TYCO HEALTHCARE/MALLINCKRODT-T201000057

PATIENT
  Age: 57 Year
  Sex: Female

DRUGS (4)
  1. FENTANYL [Suspect]
     Dosage: UNK
  2. DIPHENHYDRAMINE [Suspect]
  3. PROMETHAZINE [Suspect]
  4. TRAZODONE [Suspect]

REACTIONS (2)
  - ADVERSE DRUG REACTION [None]
  - CARDIO-RESPIRATORY ARREST [None]
